FAERS Safety Report 10264737 (Version 2)
Quarter: 2014Q2

REPORT INFORMATION
  Report Type: Spontaneous
  Country: US (occurrence: US)
  Receive Date: 20140627
  Receipt Date: 20140627
  Transmission Date: 20141212
  Serious: Yes (Other)
  Sender: FDA-Public Use
  Company Number: US-JNJCP-30000225604

PATIENT
  Sex: Male

DRUGS (1)
  1. AVEENO NOURISH DANDRUFF CONTROL SHAMPOO [Suspect]
     Indication: PRODUCT USED FOR UNKNOWN INDICATION
     Route: 045

REACTIONS (2)
  - Anaphylactic reaction [Unknown]
  - Product odour abnormal [Unknown]
